FAERS Safety Report 9714025 (Version 1)
Quarter: 2013Q4

REPORT INFORMATION
  Report Type: Spontaneous
  Country: US (occurrence: US)
  Receive Date: 20131126
  Receipt Date: 20131126
  Transmission Date: 20140711
  Serious: Yes (Hospitalization)
  Sender: FDA-Public Use
  Company Number: US-GILEAD-2008-0018593

PATIENT
  Sex: Female
  Weight: 109.77 kg

DRUGS (14)
  1. LETAIRIS [Suspect]
     Indication: PULMONARY ARTERIAL HYPERTENSION
     Route: 048
     Dates: start: 20080819
  2. REVATIO [Concomitant]
  3. COUMADIN [Concomitant]
  4. NORVASC [Concomitant]
  5. DEMADEX [Concomitant]
  6. LISINOPRIL [Concomitant]
  7. TEKTURNA [Concomitant]
  8. TAMBOCOR [Concomitant]
  9. COMBIVENT INHALER [Concomitant]
  10. LEXAPRO [Concomitant]
  11. TYLENOL 8-HOUR TAB [Concomitant]
  12. LIMBREL [Concomitant]
  13. PRILOSEC [Concomitant]
  14. CALCIUM + D TAB [Concomitant]

REACTIONS (1)
  - Oedema peripheral [None]
